FAERS Safety Report 6693737-5 (Version None)
Quarter: 2010Q2

REPORT INFORMATION
  Report Type: 
  Country: None (occurrence: None)
  Receive Date: 20100423
  Receipt Date: 20100105
  Transmission Date: 20101027
  Serious: No
  Sender: FDA-Public Use
  Company Number: A0712966A

PATIENT
  Age: 60 Year
  Sex: Female

DRUGS (2)
  1. DEXEDRINE [Suspect]
     Indication: ATTENTION DEFICIT/HYPERACTIVITY DISORDER
     Dosage: 15MG UNKNOWN
     Route: 048
     Dates: start: 19950501
  2. NO CONCURRENT MEDICATION [Concomitant]

REACTIONS (12)
  - ABNORMAL BEHAVIOUR [None]
  - ADVERSE DRUG REACTION [None]
  - DISORIENTATION [None]
  - HYPERSOMNIA [None]
  - MUSCLE SPASMS [None]
  - MYDRIASIS [None]
  - NAUSEA [None]
  - PALLOR [None]
  - PARAESTHESIA [None]
  - PRODUCT QUALITY ISSUE [None]
  - SOMNOLENCE [None]
  - THERAPEUTIC RESPONSE DECREASED [None]
